FAERS Safety Report 7026290-7 (Version None)
Quarter: 2010Q4

REPORT INFORMATION
  Report Type: 
  Country: None (occurrence: None)
  Receive Date: 20101004
  Receipt Date: 20100927
  Transmission Date: 20110411
  Serious: Yes (Hospitalization, Other)
  Sender: FDA-Public Use
  Company Number: US-PFIZER INC-2005029097

PATIENT
  Sex: Female
  Weight: 54.9 kg

DRUGS (2)
  1. NORVASC [Suspect]
     Indication: HYPERTENSION
     Dosage: 2.5 MG, DAILY
     Route: 048
     Dates: start: 20030101
  2. AMLODIPINE BESYLATE [Suspect]
     Dosage: 2.5 MG, 1X/DAY

REACTIONS (19)
  - ABDOMINAL PAIN [None]
  - ARTHRITIS [None]
  - BLOOD PRESSURE FLUCTUATION [None]
  - BUNION [None]
  - CONSTIPATION [None]
  - DEMENTIA ALZHEIMER'S TYPE [None]
  - DIARRHOEA [None]
  - DIZZINESS [None]
  - DYSPNOEA [None]
  - HEART RATE IRREGULAR [None]
  - HERNIA [None]
  - INSOMNIA [None]
  - NAUSEA [None]
  - OEDEMA PERIPHERAL [None]
  - OSTEOPOROSIS [None]
  - PNEUMONIA [None]
  - POLLAKIURIA [None]
  - SKIN DISORDER [None]
  - VASODILATATION [None]
